FAERS Safety Report 8968916 (Version 1)
Quarter: 2012Q4

REPORT INFORMATION
  Report Type: Spontaneous
  Country: BR (occurrence: None)
  Receive Date: 20121210
  Receipt Date: 20121210
  Transmission Date: 20130627
  Serious: Yes (Hospitalization, Other)
  Sender: FDA-Public Use
  Company Number: DSU-2012-09636

PATIENT
  Age: 64 Year
  Sex: Female

DRUGS (2)
  1. OLMETEC HCT [Suspect]
     Indication: DRUG USE FOR UNKNOWN INDICATION
     Dosage: 20/ 12.5 mg (QD), Per oral
     Route: 048
     Dates: start: 20101227
  2. PANTOPRAZOLE [Concomitant]

REACTIONS (3)
  - Gastrointestinal carcinoma [None]
  - Metastases to liver [None]
  - Hepatic cancer [None]
